FAERS Safety Report 8344893-4 (Version None)
Quarter: 2012Q2

REPORT INFORMATION
  Report Type: 
  Country: None (occurrence: None)
  Receive Date: 20120508
  Receipt Date: 20071119
  Transmission Date: 20120825
  Serious: Yes (Hospitalization)
  Sender: FDA-Public Use
  Company Number: US-TEVA-US021756

PATIENT
  Sex: Female
  Weight: 68 kg

DRUGS (1)
  1. GABITRIL [Suspect]
     Indication: MYOCLONIC EPILEPSY
     Dosage: 4 MILLIGRAM;
     Route: 048

REACTIONS (2)
  - CONSTIPATION [None]
  - RESPIRATORY DEPRESSION [None]
